FAERS Safety Report 9213299 (Version 12)
Quarter: 2014Q2

REPORT INFORMATION
  Report Type: Spontaneous
  Country: US (occurrence: US)
  Receive Date: 20130405
  Receipt Date: 20140624
  Transmission Date: 20141212
  Serious: Yes (Hospitalization, Other)
  Sender: FDA-Public Use
  Company Number: US-JNJFOC-20121015605

PATIENT
  Age: 71 Year
  Sex: Female
  Weight: 59.88 kg

DRUGS (21)
  1. TYLENOL [Suspect]
     Indication: HEADACHE
     Route: 048
     Dates: start: 2012
  2. TYLENOL [Suspect]
     Indication: HEADACHE
     Route: 048
     Dates: start: 20101012, end: 20101016
  3. TYLENOL [Suspect]
     Indication: FIBROMYALGIA
     Route: 048
     Dates: start: 2012
  4. TYLENOL [Suspect]
     Indication: FIBROMYALGIA
     Route: 048
     Dates: start: 20101012, end: 20101016
  5. TYLENOL [Suspect]
     Indication: ARTHRALGIA
     Route: 048
     Dates: start: 2012
  6. TYLENOL [Suspect]
     Indication: ARTHRALGIA
     Route: 048
     Dates: start: 20101012, end: 20101016
  7. OXYCODONE APAP [Suspect]
     Indication: PRODUCT USED FOR UNKNOWN INDICATION
     Route: 048
  8. DIAZEPAM [Concomitant]
     Indication: ANXIETY
     Route: 048
     Dates: start: 2010
  9. PHENERGAN [Concomitant]
     Indication: PRODUCT USED FOR UNKNOWN INDICATION
     Route: 048
  10. PROZAC [Concomitant]
     Indication: PRODUCT USED FOR UNKNOWN INDICATION
     Route: 048
  11. ZANTAC [Concomitant]
     Indication: PRODUCT USED FOR UNKNOWN INDICATION
     Route: 048
  12. SYNTHROID [Concomitant]
     Indication: HYPOTHYROIDISM
     Route: 048
  13. OXYCODONE [Concomitant]
     Indication: PAIN
     Route: 048
     Dates: start: 2009
  14. OXYCODONE [Concomitant]
     Indication: PAIN
     Route: 048
     Dates: start: 2010
  15. LEXAPRO [Concomitant]
     Indication: DEPRESSION
     Route: 048
     Dates: start: 2009
  16. CLONAZEPAM [Concomitant]
     Indication: ANXIETY
     Route: 048
     Dates: start: 2010
  17. CLONAZEPAM [Concomitant]
     Indication: ANXIETY
     Route: 048
     Dates: start: 2011
  18. CITALOPRAM [Concomitant]
     Indication: DEPRESSION
     Route: 065
     Dates: start: 2010
  19. PROMETHAZINE [Concomitant]
     Indication: NAUSEA
     Route: 065
     Dates: start: 2009, end: 2011
  20. PROMETHAZINE [Concomitant]
     Indication: VOMITING
     Route: 065
     Dates: start: 2009, end: 2011
  21. FLUOXETINE [Concomitant]
     Indication: PRODUCT USED FOR UNKNOWN INDICATION
     Route: 065

REACTIONS (5)
  - Acute hepatic failure [Unknown]
  - Hepatitis acute [Recovered/Resolved]
  - Depression [Unknown]
  - Injury [Unknown]
  - Amnesia [Unknown]
